FAERS Safety Report 11162953 (Version 1)
Quarter: 2015Q2

REPORT INFORMATION
  Report Type: Report from Study
  Country: US (occurrence: US)
  Receive Date: 20150604
  Receipt Date: 20150604
  Transmission Date: 20150821
  Serious: No
  Sender: FDA-Public Use
  Company Number: US-SA-2015SA023341

PATIENT
  Age: 61 Year
  Sex: Female

DRUGS (4)
  1. LANTUS [Suspect]
     Active Substance: INSULIN GLARGINE
     Indication: TYPE 2 DIABETES MELLITUS
     Dosage: DOSE:10 UNIT(S)
     Route: 058
     Dates: end: 20150519
  2. LANTUS [Suspect]
     Active Substance: INSULIN GLARGINE
     Indication: TYPE 2 DIABETES MELLITUS
     Dosage: DOSE: 14 UNITS IN DAY AND 20 AT NIGHT
     Route: 065
  3. LANTUS [Suspect]
     Active Substance: INSULIN GLARGINE
     Indication: TYPE 2 DIABETES MELLITUS
     Dosage: DOSE: 30 UNITS IN DAY AND 20 AT NIGHT
     Route: 065
     Dates: start: 20150215
  4. LANTUS [Suspect]
     Active Substance: INSULIN GLARGINE
     Indication: TYPE 2 DIABETES MELLITUS
     Dosage: DOSE: 30 UNITS IN DAY AND 20 AT NIGHT
     Route: 065
     Dates: start: 20150215

REACTIONS (9)
  - Back pain [Not Recovered/Not Resolved]
  - Enteritis [Unknown]
  - Incorrect product storage [Unknown]
  - Vision blurred [Not Recovered/Not Resolved]
  - Injection site bruising [Unknown]
  - Drug administration error [Unknown]
  - Injection site reaction [Unknown]
  - Injection site haemorrhage [Unknown]
  - Drug prescribing error [Unknown]

NARRATIVE: CASE EVENT DATE: 201502
